FAERS Safety Report 5607898-X (Version None)
Quarter: 2008Q1

REPORT INFORMATION
  Report Type: 
  Country: None (occurrence: None)
  Receive Date: 20080130
  Receipt Date: 20080129
  Transmission Date: 20080703
  Serious: Yes (Other)
  Sender: FDA-Public Use
  Company Number: US-BRISTOL-MYERS SQUIBB COMPANY-14058416

PATIENT

DRUGS (1)
  1. ERBITUX [Suspect]

REACTIONS (2)
  - CONVULSION [None]
  - HEADACHE [None]
